FAERS Safety Report 13457929 (Version 1)
Quarter: 2017Q2

REPORT INFORMATION
  Report Type: Spontaneous
  Country: US (occurrence: US)
  Receive Date: 20170419
  Receipt Date: 20170419
  Transmission Date: 20170830
  Serious: Yes (Death)
  Sender: FDA-Public Use
  Company Number: US-B.I. PHARMACEUTICALS,INC./RIDGEFIELD-2017-BI-022203

PATIENT
  Age: 57 Year
  Sex: Male

DRUGS (1)
  1. COMBIVENT [Suspect]
     Active Substance: ALBUTEROL SULFATE\IPRATROPIUM BROMIDE
     Indication: CHRONIC OBSTRUCTIVE PULMONARY DISEASE
     Dosage: 1 PUFF EVERY 4 HOURS AS NEEDED;  FORM STRENGTH AND UNIT DOSE: 20 MCG / 100 MCG; . FORMULATION: INHAL
     Route: 055
     Dates: start: 201504

REACTIONS (1)
  - Death [Fatal]

NARRATIVE: CASE EVENT DATE: 20170414
